FAERS Safety Report 26090557 (Version 1)
Quarter: 2025Q4

REPORT INFORMATION
  Report Type: Spontaneous
  Country: CN (occurrence: CN)
  Receive Date: 20251126
  Receipt Date: 20251126
  Transmission Date: 20260117
  Serious: Yes (Other)
  Sender: BEIGENE
  Company Number: CN-BEONE MEDICINES-BGN-2025-020584

PATIENT

DRUGS (1)
  1. TISLELIZUMAB [Suspect]
     Active Substance: TISLELIZUMAB
     Indication: Lung adenocarcinoma
     Dosage: 200 MILLIGRAM, Q3WK
     Dates: start: 202507

REACTIONS (3)
  - Immune-mediated encephalitis [Unknown]
  - Dysphoria [Unknown]
  - Disorganised speech [Unknown]

NARRATIVE: CASE EVENT DATE: 20250101
